FAERS Safety Report 23942502 (Version 1)
Quarter: 2024Q2

REPORT INFORMATION
  Report Type: Spontaneous
  Country: US (occurrence: US)
  Receive Date: 20240605
  Receipt Date: 20240605
  Transmission Date: 20240716
  Serious: No
  Sender: FDA-Public Use
  Company Number: US-SA-SAC20240531000617

PATIENT
  Sex: Female
  Weight: 73.02 kg

DRUGS (1)
  1. DUPIXENT [Suspect]
     Active Substance: DUPILUMAB
     Indication: Drug level therapeutic
     Dosage: 300 MG, QOW
     Route: 058

REACTIONS (2)
  - Irritability [Unknown]
  - Product use in unapproved indication [Unknown]
